FAERS Safety Report 23339176 (Version 1)
Quarter: 2023Q4

REPORT INFORMATION
  Report Type: Spontaneous
  Country: US (occurrence: US)
  Receive Date: 20231226
  Receipt Date: 20231226
  Transmission Date: 20240110
  Serious: No
  Sender: FDA-Public Use
  Company Number: US-BIOGEN-2023BI01239982

PATIENT
  Sex: Female

DRUGS (6)
  1. VUMERITY [Suspect]
     Active Substance: DIROXIMEL FUMARATE
     Indication: Multiple sclerosis
     Dosage: TAKING HALF A DOSE
     Route: 050
     Dates: start: 20210914
  2. BACLOFEN [Concomitant]
     Active Substance: BACLOFEN
     Route: 050
  3. MODAFINIL [Concomitant]
     Active Substance: MODAFINIL
     Route: 050
  4. FAMOTIDINE [Concomitant]
     Active Substance: FAMOTIDINE
     Route: 050
  5. PANTOPRAZOLE [Concomitant]
     Active Substance: PANTOPRAZOLE
     Route: 050
  6. SODIUM [Concomitant]
     Active Substance: SODIUM
     Route: 050

REACTIONS (3)
  - Intentional product misuse [Not Recovered/Not Resolved]
  - Vertigo [Unknown]
  - Flushing [Unknown]
